FAERS Safety Report 5758168-0 (Version None)
Quarter: 2008Q2

REPORT INFORMATION
  Report Type: 
  Country: None (occurrence: None)
  Receive Date: 20080530
  Receipt Date: 20080514
  Transmission Date: 20081010
  Serious: Yes (Other)
  Sender: FDA-Public Use
  Company Number: S08-PRT-01905-01

PATIENT
  Age: 23 Year
  Sex: Female

DRUGS (1)
  1. ESCITALOPRAM [Suspect]
     Indication: PANIC DISORDER
     Dosage: 10 MG QD PO
     Route: 048
     Dates: start: 20080101, end: 20080101

REACTIONS (2)
  - PALPITATIONS [None]
  - VENTRICULAR TACHYCARDIA [None]
